FAERS Safety Report 18345707 (Version 2)
Quarter: 2020Q4

REPORT INFORMATION
  Report Type: Spontaneous
  Country: US (occurrence: US)
  Receive Date: 20201005
  Receipt Date: 20201103
  Transmission Date: 20210114
  Serious: Yes (Other)
  Sender: FDA-Public Use
  Company Number: US-AMGEN-USASP2020158684

PATIENT
  Age: 64 Year
  Sex: Male

DRUGS (1)
  1. OTEZLA [Suspect]
     Active Substance: APREMILAST
     Indication: PSORIATIC ARTHROPATHY
     Dosage: 30 MILLIGRAM, BID
     Route: 048
     Dates: start: 202009, end: 202010

REACTIONS (4)
  - Nausea [Recovered/Resolved]
  - Frequent bowel movements [Unknown]
  - Atrial fibrillation [Unknown]
  - Nasal congestion [Unknown]

NARRATIVE: CASE EVENT DATE: 202009
